FAERS Safety Report 6062855-7 (Version None)
Quarter: 2009Q1

REPORT INFORMATION
  Report Type: 
  Country: None (occurrence: None)
  Receive Date: 20090202
  Receipt Date: 20090202
  Transmission Date: 20090719
  Serious: Yes (Other)
  Sender: FDA-Public Use
  Company Number: None

PATIENT
  Age: 16 Year
  Sex: Male
  Weight: 92.9 kg

DRUGS (3)
  1. BUPROPION HCL [Suspect]
     Indication: ANXIETY
     Dosage: 300 MG DAILY PO, UNKNOWN, RECENT DOSE INC.
     Route: 048
  2. ALBUTEROL [Concomitant]
  3. EPINEPHRINE [Concomitant]

REACTIONS (3)
  - HEMIPARESIS [None]
  - HYPOAESTHESIA [None]
  - PAIN IN EXTREMITY [None]
